FAERS Safety Report 19327996 (Version 3)
Quarter: 2021Q3

REPORT INFORMATION
  Report Type: Report from Study
  Country: US (occurrence: US)
  Receive Date: 20210528
  Receipt Date: 20210830
  Transmission Date: 20211014
  Serious: Yes (Other)
  Sender: FDA-Public Use
  Company Number: US-OTSUKA-2021_017671

PATIENT
  Age: 80 Year
  Sex: Male

DRUGS (2)
  1. CEDAZURIDINE AND DECITABINE [Suspect]
     Active Substance: CEDAZURIDINE\DECITABINE
     Indication: REFRACTORY ANAEMIA WITH RINGED SIDEROBLASTS
     Dosage: 100/35 MG (35 MG DECITABINE AND 100 MG CEDAZURIDINE), QD FOR 3 DAYS EVERY 4 WEEKS
     Route: 048
     Dates: start: 20210510
  2. CEDAZURIDINE AND DECITABINE [Suspect]
     Active Substance: CEDAZURIDINE\DECITABINE
     Dosage: 100/35 MG (35 MG DECITABINE AND 100 MG CEDAZURIDINE), QD FOR 1?4 DAYS EVERY 4 WEEKS
     Route: 048

REACTIONS (5)
  - Blood glucose increased [Unknown]
  - Blood count abnormal [Unknown]
  - Eye haemorrhage [Recovering/Resolving]
  - Macular degeneration [Recovering/Resolving]
  - Product use issue [Unknown]

NARRATIVE: CASE EVENT DATE: 20210510
